FAERS Safety Report 14277117 (Version 1)
Quarter: 2017Q4

REPORT INFORMATION
  Report Type: Spontaneous
  Country: DE (occurrence: DE)
  Receive Date: 20171212
  Receipt Date: 20171212
  Transmission Date: 20180321
  Serious: Yes (Other)
  Sender: FDA-Public Use
  Company Number: DE-009507513-1712DEU005068

PATIENT
  Sex: Male

DRUGS (1)
  1. PROPECIA [Suspect]
     Active Substance: FINASTERIDE
     Indication: PRODUCT USED FOR UNKNOWN INDICATION
     Dosage: 1 MG, QD
     Route: 048
     Dates: start: 200210, end: 201211

REACTIONS (35)
  - Panic attack [Unknown]
  - Disorientation [Unknown]
  - Tinnitus [Unknown]
  - Mental impairment [Unknown]
  - Anxiety [Unknown]
  - Feeling abnormal [Unknown]
  - Memory impairment [Unknown]
  - Inflammation [Unknown]
  - Erectile dysfunction [Unknown]
  - Apathy [Unknown]
  - Gynaecomastia [Unknown]
  - Ejaculation failure [Unknown]
  - Mood swings [Unknown]
  - Fatigue [Unknown]
  - Sleep disorder [Unknown]
  - Myalgia [Unknown]
  - Muscle atrophy [Unknown]
  - Muscular weakness [Unknown]
  - Weight fluctuation [Unknown]
  - Bradyphrenia [Unknown]
  - Hyperhidrosis [Unknown]
  - Palpitations [Unknown]
  - Urinary incontinence [Unknown]
  - Dry skin [Unknown]
  - Hypotrichosis [Unknown]
  - Pollakiuria [Unknown]
  - Anorgasmia [Unknown]
  - Arthralgia [Unknown]
  - Gastrointestinal inflammation [Unknown]
  - Anhedonia [Unknown]
  - Visual impairment [Unknown]
  - Muscle twitching [Unknown]
  - Dyspepsia [Unknown]
  - Hypohidrosis [Unknown]
  - Eczema [Unknown]
